FAERS Safety Report 9186388 (Version 3)
Quarter: 2013Q2

REPORT INFORMATION
  Report Type: Spontaneous
  Country: BR (occurrence: BR)
  Receive Date: 20130325
  Receipt Date: 20130419
  Transmission Date: 20140414
  Serious: No
  Sender: FDA-Public Use
  Company Number: BR-ABBOTT-13P-020-1067919-00

PATIENT
  Sex: Female
  Weight: 75 kg

DRUGS (9)
  1. HUMIRA [Suspect]
     Indication: PSORIASIS
     Dosage: WEEK 0
     Route: 058
     Dates: start: 20121207, end: 20121207
  2. HUMIRA [Suspect]
     Route: 058
  3. TRAMAL [Concomitant]
     Indication: PAIN
     Dates: start: 20130314
  4. SIMVASTATIN [Concomitant]
     Indication: BLOOD CHOLESTEROL
     Route: 048
     Dates: start: 201210
  5. NUTRIP [Concomitant]
     Indication: ANXIETY
     Dosage: IN THE MORNING
     Route: 048
  6. CEPHALEXIN [Concomitant]
     Indication: ANTIBIOTIC THERAPY
     Dates: start: 2003
  7. OMEPRAZOLE [Concomitant]
     Indication: GASTRIC DISORDER
     Route: 048
     Dates: start: 2003
  8. FUROSEMIDE [Concomitant]
     Indication: BLOOD PRESSURE
     Route: 048
     Dates: start: 2003
  9. CLONAZEPAM [Concomitant]
     Indication: SLEEP DISORDER THERAPY
     Route: 048
     Dates: start: 201209

REACTIONS (1)
  - Infection [Unknown]
